FAERS Safety Report 9506036 (Version 1)
Quarter: 2013Q1

REPORT INFORMATION
  Report Type: Spontaneous
  Country: US (occurrence: None)
  Receive Date: 20130305
  Receipt Date: 20130305
  Transmission Date: 20140127
  Serious: Yes (Other)
  Sender: FDA-Public Use
  Company Number: 163-21880-12050344

PATIENT
  Age: 78 Year
  Sex: Female
  Weight: 69.4 kg

DRUGS (7)
  1. REVLIMID [Suspect]
     Dosage: 25 MG, DAYS 1-21
     Dates: start: 20120203
  2. AMIODARONE [Concomitant]
  3. ASPIRIN (ACETYLSALICYLIC ACID) [Concomitant]
  4. COZAAR (LOSARTAN POTASSIUM) [Concomitant]
  5. PLAVIX (CLOPIDOGREL SULFATE) [Concomitant]
  6. PRAVACHOL (PRAVASTATIN SODIUM) [Concomitant]
  7. PRILOSEC [Concomitant]

REACTIONS (1)
  - Full blood count decreased [None]
